FAERS Safety Report 21475217 (Version 4)
Quarter: 2022Q4

REPORT INFORMATION
  Report Type: Spontaneous
  Country: US (occurrence: US)
  Receive Date: 20221019
  Receipt Date: 20221118
  Transmission Date: 20230112
  Serious: No
  Sender: FDA-Public Use
  Company Number: US-JNJFOC-20221022854

PATIENT
  Age: 84 Year
  Sex: Male
  Weight: 86.260 kg

DRUGS (12)
  1. STELARA [Suspect]
     Active Substance: USTEKINUMAB
     Indication: Colitis ulcerative
     Route: 058
     Dates: start: 20220920
  2. STELARA [Suspect]
     Active Substance: USTEKINUMAB
  3. ASPIRIN [Concomitant]
     Active Substance: ASPIRIN
  4. HYDROCHLOROTHIAZIDE [Concomitant]
     Active Substance: HYDROCHLOROTHIAZIDE
  5. LANSOPRAZOLE [Concomitant]
     Active Substance: LANSOPRAZOLE
  6. LASIX [Concomitant]
     Active Substance: FUROSEMIDE
  7. ZOCOR [Concomitant]
     Active Substance: SIMVASTATIN
  8. ZOLOFT [Concomitant]
     Active Substance: SERTRALINE HYDROCHLORIDE
  9. POTASSIUM [Concomitant]
     Active Substance: POTASSIUM
  10. TIMOLOL [Concomitant]
     Active Substance: TIMOLOL
  11. VITAMIN C [Concomitant]
     Active Substance: ASCORBIC ACID
  12. VITAMIN D2 [Concomitant]
     Active Substance: ERGOCALCIFEROL

REACTIONS (4)
  - Product dose omission issue [Unknown]
  - Syringe issue [Unknown]
  - Product use complaint [Unknown]
  - Visual impairment [Unknown]

NARRATIVE: CASE EVENT DATE: 20221011
